FAERS Safety Report 4807148-8 (Version None)
Quarter: 2005Q4

REPORT INFORMATION
  Report Type: 
  Country: None (occurrence: None)
  Receive Date: 20051024
  Receipt Date: 20051013
  Transmission Date: 20060501
  Serious: Yes (Life-Threatening)
  Sender: FDA-Public Use
  Company Number: 200513919EU

PATIENT
  Age: 73 Year
  Sex: Male

DRUGS (3)
  1. COVERSYL [Suspect]
     Indication: HYPERTENSION
     Route: 048
     Dates: start: 20050514, end: 20050930
  2. PANALDINE [Suspect]
     Indication: CEREBRAL INFARCTION
     Route: 048
     Dates: start: 20050501, end: 20050930
  3. MEDICON [Concomitant]
     Indication: DRUG USE FOR UNKNOWN INDICATION
     Route: 048

REACTIONS (1)
  - CEREBRAL HAEMORRHAGE [None]
